FAERS Safety Report 7132994-8 (Version None)
Quarter: 2010Q4

REPORT INFORMATION
  Report Type: 
  Country: None (occurrence: None)
  Receive Date: 20101202
  Receipt Date: 20101122
  Transmission Date: 20110411
  Serious: Yes (Hospitalization, Congenital Anomaly)
  Sender: FDA-Public Use
  Company Number: A0679431A

PATIENT
  Sex: Male
  Weight: 3.5 kg

DRUGS (4)
  1. PAXIL CR [Suspect]
     Indication: DEPRESSION
     Dosage: 12.5MG PER DAY
     Dates: start: 20000101
  2. PRENATAL VITAMINS [Concomitant]
  3. CLARITIN-D [Concomitant]
  4. PHENERGAN [Concomitant]

REACTIONS (4)
  - DRUG EXPOSURE DURING PREGNANCY [None]
  - EXOMPHALOS [None]
  - JAUNDICE [None]
  - MATERNAL DRUGS AFFECTING FOETUS [None]
